FAERS Safety Report 25114937 (Version 1)
Quarter: 2025Q1

REPORT INFORMATION
  Report Type: Spontaneous
  Country: US (occurrence: None)
  Receive Date: 20250324
  Receipt Date: 20250324
  Transmission Date: 20250409
  Serious: Yes (Disabling)
  Sender: FDA-CTU
  Company Number: None

PATIENT
  Age: 56 Year
  Sex: Male
  Weight: 102.15 kg

DRUGS (4)
  1. IMIQUIMOD [Suspect]
     Active Substance: IMIQUIMOD
     Indication: Precancerous skin lesion
     Dosage: AT BEDTIME TOPICAL ?
     Route: 061
     Dates: start: 20250321, end: 20250324
  2. LOSARTAN [Concomitant]
     Active Substance: LOSARTAN
  3. HERBALS\TURMERIC [Concomitant]
     Active Substance: HERBALS\TURMERIC
  4. VITAMIN B [Concomitant]
     Active Substance: VITAMIN B

REACTIONS (4)
  - Arthralgia [None]
  - Pyrexia [None]
  - Chills [None]
  - Headache [None]

NARRATIVE: CASE EVENT DATE: 20250323
